FAERS Safety Report 7232401-0 (Version None)
Quarter: 2011Q1

REPORT INFORMATION
  Report Type: 
  Country: None (occurrence: None)
  Receive Date: 20110119
  Receipt Date: 20110114
  Transmission Date: 20110831
  Serious: Yes (Death, Other)
  Sender: FDA-Public Use
  Company Number: US-ASTELLAS-2011US000177

PATIENT

DRUGS (5)
  1. ANTI-THYMOCYTE GLOBULIN RABBIT NOS [Suspect]
     Indication: RENAL TRANSPLANT
     Dosage: 350 MG, TOTAL DOSE
     Dates: start: 20060201
  2. PREDNISONE [Suspect]
     Indication: RENAL TRANSPLANT
     Dosage: UNK
     Route: 065
     Dates: start: 20060101
  3. CORTICOSTEROID NOS [Suspect]
     Indication: RENAL TRANSPLANT
     Dosage: 500 MG, TOTAL DOSE
     Route: 065
     Dates: start: 20060201
  4. PROGRAF [Suspect]
     Indication: RENAL TRANSPLANT
     Dosage: UNK
     Route: 065
     Dates: start: 20060101
  5. MYCOPHENOLATE MOFETIL [Suspect]
     Indication: RENAL TRANSPLANT
     Dosage: UNK
     Route: 065
     Dates: start: 20060101

REACTIONS (2)
  - DISEASE COMPLICATION [None]
  - PANCREATIC CARCINOMA METASTATIC [None]
